FAERS Safety Report 16030269 (Version 3)
Quarter: 2019Q2

REPORT INFORMATION
  Report Type: Other
  Country: None (occurrence: US)
  Receive Date: 20190304
  Receipt Date: 20190515
  Transmission Date: 20190711
  Serious: Yes (Death, Life-Threatening, Hospitalization)
  Sender: FDA-Public Use
  Company Number: US-MEDAC PHARMA, INC.-2063501

PATIENT
  Age: 17 Year
  Sex: Male
  Weight: 39.1 kg

DRUGS (7)
  1. ONCASPAR [Suspect]
     Active Substance: PEGASPARGASE
     Dates: start: 20180820, end: 20180820
  2. DEXAMETHASONE. [Suspect]
     Active Substance: DEXAMETHASONE
     Dates: start: 20180823
  3. DOXORUBICIN HYDROCHLORIDE. [Suspect]
     Active Substance: DOXORUBICIN HYDROCHLORIDE
     Dates: start: 20180824
  4. ZINECARD [Suspect]
     Active Substance: DEXRAZOXANE HYDROCHLORIDE
     Dates: start: 20180824
  5. METHOTREXATE. [Suspect]
     Active Substance: METHOTREXATE
     Indication: ACUTE LYMPHOCYTIC LEUKAEMIA
     Route: 065
     Dates: start: 20180816
  6. VINCRISTINE SULFATE. [Suspect]
     Active Substance: VINCRISTINE SULFATE
     Dates: start: 20180824
  7. GLEEVEC [Suspect]
     Active Substance: IMATINIB MESYLATE
     Dates: start: 20180823

REACTIONS (23)
  - Pneumomediastinum [Unknown]
  - Adenovirus test positive [Unknown]
  - Septic shock [Fatal]
  - Renal failure [Unknown]
  - Haemophagocytic lymphohistiocytosis [Unknown]
  - Pleural effusion [Unknown]
  - Metabolic acidosis [Unknown]
  - Pancytopenia [Unknown]
  - Clostridium test positive [Unknown]
  - Pseudomonas test positive [Unknown]
  - Respiratory acidosis [Unknown]
  - Hepatic function abnormal [Unknown]
  - Unresponsive to stimuli [Unknown]
  - Dizziness [Unknown]
  - Diarrhoea [Unknown]
  - Blood lactic acid increased [Unknown]
  - Respiratory failure [Unknown]
  - Pneumonia [Unknown]
  - Blood product transfusion dependent [Unknown]
  - Jaundice [Unknown]
  - Subcutaneous emphysema [Unknown]
  - Fall [Unknown]
  - Hypernatraemia [Unknown]

NARRATIVE: CASE EVENT DATE: 2018
